FAERS Safety Report 8662114 (Version 4)
Quarter: 2014Q2

REPORT INFORMATION
  Report Type: Spontaneous
  Country: AU (occurrence: AU)
  Receive Date: 20120712
  Receipt Date: 20140605
  Transmission Date: 20141212
  Serious: Yes (Hospitalization, Other)
  Sender: FDA-Public Use
  Company Number: AU-ALEXION PHARMACEUTICALS INC.-A201201291

PATIENT
  Sex: 0

DRUGS (3)
  1. SOLIRIS 300MG [Suspect]
     Indication: PRODUCT USED FOR UNKNOWN INDICATION
     Dosage: 900 MG, Q2W
     Route: 042
     Dates: start: 20090619
  2. PHENOXYMETHYL PENICILLIN [Concomitant]
     Indication: PROPHYLAXIS
     Dosage: 500 MG, QD (INSTEAD OF THE RECOMMENDED 500 MG BD)
     Route: 065
  3. ABBOCILLIN-G [Concomitant]
     Indication: ANTIBIOTIC PROPHYLAXIS
     Dosage: 500 MG, BID - NOT FULLY COMPLIANT USUALLY ONLY TAKES QD
     Route: 065
     Dates: start: 20110603

REACTIONS (2)
  - Meningitis meningococcal [Recovered/Resolved]
  - Aplastic anaemia [Unknown]
